FAERS Safety Report 23064922 (Version 1)
Quarter: 2023Q4

REPORT INFORMATION
  Report Type: Spontaneous
  Country: US (occurrence: US)
  Receive Date: 20231013
  Receipt Date: 20231013
  Transmission Date: 20240109
  Serious: No
  Sender: FDA-Public Use
  Company Number: US-PFIZER INC-202300316701

PATIENT
  Age: 81 Year
  Sex: Female
  Weight: 45.351 kg

DRUGS (1)
  1. VIZIMPRO [Suspect]
     Active Substance: DACOMITINIB
     Indication: Lung neoplasm malignant
     Dosage: 45 MG
     Route: 048

REACTIONS (3)
  - Nail bed bleeding [Unknown]
  - Onychalgia [Unknown]
  - Glossodynia [Unknown]

NARRATIVE: CASE EVENT DATE: 20230901
